FAERS Safety Report 9559851 (Version 1)
Quarter: 2013Q3

REPORT INFORMATION
  Report Type: Spontaneous
  Country: FR (occurrence: FR)
  Receive Date: 20130927
  Receipt Date: 20130927
  Transmission Date: 20140515
  Serious: Yes (Life-Threatening, Hospitalization)
  Sender: FDA-Public Use
  Company Number: FR-BAYER-2013-113360

PATIENT
  Age: 39 Year
  Sex: Female

DRUGS (5)
  1. CIFLOX [Suspect]
     Indication: POST PROCEDURAL INFECTION
     Dosage: 500 MG, TID
     Route: 048
     Dates: start: 20130823, end: 20130903
  2. RIFAMPICINE [Suspect]
     Indication: POST PROCEDURAL INFECTION
     Dosage: 500 MG, TID
     Route: 048
     Dates: start: 20130823, end: 20130903
  3. BACTRIM FORTE [Suspect]
     Indication: POST PROCEDURAL INFECTION
     Dosage: 2 DF, TID
     Route: 048
     Dates: start: 20130823, end: 20130903
  4. LOVENOX [Suspect]
     Dosage: UNK
     Route: 058
     Dates: start: 20130723, end: 20130903
  5. LEDERFOLINE [Concomitant]
     Dosage: 5 MG, QD

REACTIONS (3)
  - Epistaxis [Recovered/Resolved]
  - Petechiae [Recovered/Resolved]
  - Thrombocytopenia [Recovered/Resolved]
